FAERS Safety Report 20634303 (Version 1)
Quarter: 2022Q1

REPORT INFORMATION
  Report Type: Spontaneous
  Country: US (occurrence: US)
  Receive Date: 20220325
  Receipt Date: 20220325
  Transmission Date: 20220423
  Serious: Yes (Hospitalization)
  Sender: FDA-Public Use
  Company Number: US-STRIDES ARCOLAB LIMITED-2022SP003032

PATIENT
  Sex: Female

DRUGS (3)
  1. METHOTREXATE [Suspect]
     Active Substance: METHOTREXATE
     Indication: Systemic lupus erythematosus
     Dosage: UNK
     Route: 065
  2. HYDROXYCHLOROQUINE [Concomitant]
     Active Substance: HYDROXYCHLOROQUINE
     Indication: Autoimmune disorder
     Dosage: UNK
     Route: 065
  3. PILOCARPINE [Concomitant]
     Active Substance: PILOCARPINE
     Indication: Autoimmune disorder
     Dosage: UNK
     Route: 065

REACTIONS (4)
  - Acute chest syndrome [Recovered/Resolved]
  - Pneumonia [Recovered/Resolved]
  - Pleural effusion [Unknown]
  - Off label use [Unknown]
